FAERS Safety Report 17044672 (Version 1)
Quarter: 2019Q4

REPORT INFORMATION
  Report Type: Spontaneous
  Country: CA (occurrence: CA)
  Receive Date: 20191118
  Receipt Date: 20191118
  Transmission Date: 20200122
  Serious: Yes (Other)
  Sender: FDA-Public Use
  Company Number: CA-TEVA-2019-CA-1137001

PATIENT
  Age: 66 Year
  Sex: Female

DRUGS (5)
  1. PREDNISONE. [Suspect]
     Active Substance: PREDNISONE
     Indication: PRODUCT USED FOR UNKNOWN INDICATION
     Route: 065
  2. PREDNISONE. [Suspect]
     Active Substance: PREDNISONE
     Route: 065
  3. CICLOSPORIN [Suspect]
     Active Substance: CYCLOSPORINE
     Indication: GRAFT VERSUS HOST DISEASE
  4. CICLOSPORIN [Suspect]
     Active Substance: CYCLOSPORINE
     Indication: PROPHYLAXIS AGAINST TRANSPLANT REJECTION
     Dosage: 200 MILLIGRAM DAILY;
     Route: 042
  5. CICLOSPORIN [Suspect]
     Active Substance: CYCLOSPORINE
     Indication: BONE MARROW TRANSPLANT

REACTIONS (9)
  - Product use in unapproved indication [Not Recovered/Not Resolved]
  - Microangiopathic haemolytic anaemia [Not Recovered/Not Resolved]
  - Rash [Not Recovered/Not Resolved]
  - Petechiae [Not Recovered/Not Resolved]
  - Graft versus host disease in gastrointestinal tract [Not Recovered/Not Resolved]
  - Pallor [Not Recovered/Not Resolved]
  - Graft versus host disease in skin [Not Recovered/Not Resolved]
  - Drug intolerance [Not Recovered/Not Resolved]
  - Contusion [Not Recovered/Not Resolved]
